FAERS Safety Report 14957807 (Version 4)
Quarter: 2018Q4

REPORT INFORMATION
  Report Type: Report from Study
  Country: JP (occurrence: JP)
  Receive Date: 20180531
  Receipt Date: 20181029
  Transmission Date: 20190204
  Serious: Yes (Other)
  Sender: FDA-Public Use
  Company Number: JP-JNJFOC-20180532514

PATIENT
  Age: 69 Year
  Sex: Male
  Weight: 61 kg

DRUGS (7)
  1. DARZALEX [Suspect]
     Active Substance: DARATUMUMAB
     Indication: PLASMA CELL MYELOMA
     Route: 041
     Dates: start: 20180116, end: 20180327
  2. VELCADE [Suspect]
     Active Substance: BORTEZOMIB
     Indication: PLASMA CELL MYELOMA
     Route: 058
     Dates: start: 20180116, end: 20180508
  3. DEXAMETHASONE. [Suspect]
     Active Substance: DEXAMETHASONE
     Indication: PLASMA CELL MYELOMA
     Route: 065
     Dates: start: 20180116, end: 20180509
  4. DARZALEX [Suspect]
     Active Substance: DARATUMUMAB
     Indication: PLASMA CELL MYELOMA
     Route: 041
     Dates: start: 20180403, end: 20180424
  5. VELCADE [Suspect]
     Active Substance: BORTEZOMIB
     Indication: PLASMA CELL MYELOMA
     Route: 058
     Dates: start: 20171128, end: 20171226
  6. DENOSUMAB [Concomitant]
     Active Substance: DENOSUMAB
     Indication: PLASMA CELL MYELOMA
     Route: 065
  7. FILGRASTIM BS [Concomitant]
     Active Substance: FILGRASTIM
     Indication: BONE MARROW FAILURE
     Route: 065
     Dates: start: 20180121, end: 20180326

REACTIONS (7)
  - Constipation [Recovering/Resolving]
  - Bone marrow failure [Recovering/Resolving]
  - Sneezing [Recovered/Resolved]
  - Diarrhoea [Recovering/Resolving]
  - Infusion related reaction [Recovered/Resolved]
  - Hot flush [Recovered/Resolved]
  - Infection [Recovering/Resolving]

NARRATIVE: CASE EVENT DATE: 20180116
